FAERS Safety Report 17260813 (Version 1)
Quarter: 2020Q1

REPORT INFORMATION
  Report Type: Report from Study
  Country: CA (occurrence: CA)
  Receive Date: 20200113
  Receipt Date: 20200113
  Transmission Date: 20200409
  Serious: Yes (Hospitalization)
  Sender: FDA-Public Use
  Company Number: CA-ORION CORPORATION ORION PHARMA-TREX2020-0181

PATIENT
  Age: 68 Year
  Sex: Female

DRUGS (17)
  1. TYLENOL [Concomitant]
     Active Substance: ACETAMINOPHEN
     Indication: PSORIATIC ARTHROPATHY
     Route: 048
  2. COSENTYX [Suspect]
     Active Substance: SECUKINUMAB
     Dosage: DOSE: 300 (UNITS UNKNOWN)
     Route: 058
  3. PREDNISONE. [Concomitant]
     Active Substance: PREDNISONE
     Dosage: DOSE: 3 (UNSPECIFIED UNITS)
     Route: 065
  4. METHOTREXATE (TRADE NAME UNKNOWN) [Suspect]
     Active Substance: METHOTREXATE
     Indication: PSORIATIC ARTHROPATHY
     Route: 065
  5. LEFLUNOMIDE. [Suspect]
     Active Substance: LEFLUNOMIDE
     Indication: PRODUCT USED FOR UNKNOWN INDICATION
     Route: 065
  6. COSENTYX [Suspect]
     Active Substance: SECUKINUMAB
     Dosage: DOSE: 300 (UNITS UNKNOWN)
     Route: 058
  7. COSENTYX [Suspect]
     Active Substance: SECUKINUMAB
     Indication: PSORIATIC ARTHROPATHY
     Route: 058
  8. COSENTYX [Suspect]
     Active Substance: SECUKINUMAB
     Dosage: DOSE: 300 (UNITS UNKNOWN)
     Route: 058
  9. AMIODARONE [Concomitant]
     Active Substance: AMIODARONE
     Indication: ANXIETY
     Route: 065
  10. TORADOL [Concomitant]
     Active Substance: KETOROLAC TROMETHAMINE
     Indication: PSORIATIC ARTHROPATHY
     Route: 048
  11. COSENTYX [Suspect]
     Active Substance: SECUKINUMAB
     Route: 058
  12. COSENTYX [Suspect]
     Active Substance: SECUKINUMAB
     Route: 058
  13. AMIODARONE [Concomitant]
     Active Substance: AMIODARONE
     Indication: ANGINA PECTORIS
  14. ATIVAN [Concomitant]
     Active Substance: LORAZEPAM
     Indication: ANXIETY
     Route: 065
  15. MOTRIN [Concomitant]
     Active Substance: IBUPROFEN
     Indication: PSORIATIC ARTHROPATHY
     Route: 048
  16. OXYBUTYNIN. [Concomitant]
     Active Substance: OXYBUTYNIN CHLORIDE
     Indication: CARDIAC DISORDER
     Route: 065
  17. PREDNISONE. [Concomitant]
     Active Substance: PREDNISONE
     Indication: PSORIATIC ARTHROPATHY
     Route: 048

REACTIONS (19)
  - Therapeutic response shortened [Unknown]
  - Confusional state [Unknown]
  - C-reactive protein increased [Unknown]
  - Dysuria [Unknown]
  - Flank pain [Unknown]
  - Memory impairment [Unknown]
  - Cystitis [Unknown]
  - Dizziness [Unknown]
  - Speech disorder [Unknown]
  - Swollen joint count increased [Unknown]
  - Musculoskeletal stiffness [Unknown]
  - Nasopharyngitis [Unknown]
  - Oedema peripheral [Unknown]
  - Disorientation [Unknown]
  - Micturition urgency [Unknown]
  - Fatigue [Unknown]
  - Incoherent [Unknown]
  - Feeling abnormal [Unknown]
  - Urinary tract disorder [Unknown]
